FAERS Safety Report 5586138-4 (Version None)
Quarter: 2008Q1

REPORT INFORMATION
  Report Type: 
  Country: None (occurrence: None)
  Receive Date: 20080104
  Receipt Date: 20071224
  Transmission Date: 20080703
  Serious: Yes (Hospitalization)
  Sender: FDA-Public Use
  Company Number: TPG2007A00779

PATIENT
  Age: 19 Year
  Sex: Female

DRUGS (6)
  1. COMSETACT(PIOGLITAZONE HYDROCHLORIDE,METFORMIN HYDROCHLORIDE) [Suspect]
     Indication: TYPE 1 DIABETES MELLITUS
     Dosage: 15 MG  PIOGLITAZONE AND 850 MG METFORMIN, PER ORAL
     Route: 048
     Dates: start: 20070801, end: 20071205
  2. COTRIM FORTE(SULFAMETHOXAZOLE TRIMETHOPRIM) [Concomitant]
  3. NOVONORM (REPAGLINIDE) [Concomitant]
  4. RAMIPRIL [Concomitant]
  5. DOXEPIN HCL [Concomitant]
  6. BASAL INSULIN (INEULIN ISOPHANE HUMAN SEMISYNTHETIC) [Concomitant]

REACTIONS (4)
  - HAEMATOMA [None]
  - PETECHIAE [None]
  - PYELONEPHRITIS [None]
  - THROMBOCYTOPENIA [None]
